FAERS Safety Report 9249271 (Version 1)
Quarter: 2013Q2

REPORT INFORMATION
  Report Type: Spontaneous
  Country: FR (occurrence: FR)
  Receive Date: 20130423
  Receipt Date: 20130423
  Transmission Date: 20140414
  Serious: Yes (Hospitalization, Other)
  Sender: FDA-Public Use
  Company Number: FR-009507513-0611FRA00002

PATIENT
  Sex: Male

DRUGS (1)
  1. VIOXX [Suspect]
     Indication: RHEUMATIC DISORDER
     Dosage: 25 MG, QD
     Route: 048
     Dates: start: 200303, end: 20040824

REACTIONS (2)
  - Myocardial infarction [Recovered/Resolved]
  - Coronary artery stenosis [Recovered/Resolved]
